FAERS Safety Report 4548628-2 (Version None)
Quarter: 2004Q4

REPORT INFORMATION
  Report Type: 
  Country: None (occurrence: None)
  Receive Date: 20041227
  Receipt Date: 20040914
  Transmission Date: 20050328
  Serious: No
  Sender: FDA-Public Use
  Company Number: 04P-163-0273242-00

PATIENT
  Age: 65 Year
  Sex: Female
  Weight: 92.9874 kg

DRUGS (9)
  1. HUMIRA [Suspect]
     Indication: RHEUMATOID ARTHRITIS
     Dosage: 40 MG, 1 IN 2 WK, SUBCUTANEOUS
     Route: 058
     Dates: start: 20040801
  2. BUCINDOLOL HYDROCHLORIDE [Concomitant]
  3. METHADONE HCL [Concomitant]
  4. CLOPIDOGREL BISULFATE [Concomitant]
  5. LEVOTHYROXINE SODIUM [Concomitant]
  6. CO-DIOVAN [Concomitant]
  7. ATORVASTATIN [Concomitant]
  8. SERTRALINE HYDROCHLORIDE [Concomitant]
  9. LANSOPRAZOLE [Concomitant]

REACTIONS (1)
  - MYALGIA [None]
